FAERS Safety Report 9899799 (Version 2)
Quarter: 2014Q1

REPORT INFORMATION
  Report Type: Spontaneous
  Country: US (occurrence: US)
  Receive Date: 20140214
  Receipt Date: 20140325
  Transmission Date: 20141002
  Serious: Yes (Other)
  Sender: FDA-Public Use
  Company Number: US-FRI-1000054257

PATIENT
  Age: 58 Year
  Sex: Female
  Weight: 72 kg

DRUGS (5)
  1. LINZESS [Suspect]
     Indication: CONSTIPATION
     Dosage: 145 MCG
     Route: 048
     Dates: start: 201311, end: 201312
  2. LINZESS [Suspect]
     Indication: CONSTIPATION
     Dosage: 145 MCG EVERY THREE DAYS
     Route: 048
     Dates: start: 201312, end: 20140206
  3. LYRICA [Concomitant]
     Indication: FIBROMYALGIA
     Dosage: 300 MG
  4. VENLAFAXINE [Concomitant]
     Indication: FIBROMYALGIA
     Dosage: 150 MG
  5. ZOLPIDEM TARTRATE [Concomitant]
     Dosage: 12.5 MG QHS

REACTIONS (8)
  - Gastrointestinal ulcer [Recovering/Resolving]
  - Weight decreased [Recovering/Resolving]
  - Gastritis [Not Recovered/Not Resolved]
  - Gastrointestinal inflammation [Not Recovered/Not Resolved]
  - Diarrhoea [Recovered/Resolved]
  - Fatigue [Not Recovered/Not Resolved]
  - Asthenia [Not Recovered/Not Resolved]
  - Feeling abnormal [Not Recovered/Not Resolved]
